FAERS Safety Report 24228793 (Version 1)
Quarter: 2024Q3

REPORT INFORMATION
  Report Type: Spontaneous
  Country: US (occurrence: US)
  Receive Date: 20240820
  Receipt Date: 20240820
  Transmission Date: 20241016
  Serious: Yes (Other)
  Sender: PFIZER
  Company Number: US-PFIZER INC-202400238556

PATIENT
  Age: 67 Year
  Sex: Male

DRUGS (4)
  1. PAXLOVID [Suspect]
     Active Substance: NIRMATRELVIR\RITONAVIR
     Indication: COVID-19
     Dosage: 1 DF, 2X/DAY (1 DOSE PACK TWICE DAILY)
     Dates: start: 20240815, end: 20240816
  2. SOTALOL [Concomitant]
     Active Substance: SOTALOL\SOTALOL HYDROCHLORIDE
     Dosage: 160 MG
  3. ATORVASTATIN [Concomitant]
     Active Substance: ATORVASTATIN
     Dosage: 10 MG
     Dates: end: 20240814
  4. ASPIRIN [Concomitant]
     Active Substance: ASPIRIN
     Dosage: 81 MG

REACTIONS (3)
  - Dermatitis exfoliative generalised [Recovering/Resolving]
  - Rash maculo-papular [Recovering/Resolving]
  - Rash erythematous [Recovering/Resolving]

NARRATIVE: CASE EVENT DATE: 20240816
